FAERS Safety Report 16920292 (Version 1)
Quarter: 2019Q4

REPORT INFORMATION
  Report Type: Spontaneous
  Country: US (occurrence: US)
  Receive Date: 20190822
  Receipt Date: 20190822
  Transmission Date: 20200122
  Serious: No
  Sender: FDA-Public Use
  Company Number: None

PATIENT
  Age: 16 Year
  Sex: Male

DRUGS (1)
  1. DUPIXENT [Suspect]
     Active Substance: DUPILUMAB
     Indication: DERMATITIS ATOPIC
     Route: 058
     Dates: start: 20190515

REACTIONS (4)
  - Accidental exposure to product [None]
  - Therapy cessation [None]
  - Skin exfoliation [None]
  - Needle issue [None]

NARRATIVE: CASE EVENT DATE: 20190818
